FAERS Safety Report 6724592 (Version 15)
Quarter: 2015Q1

REPORT INFORMATION
  Report Type: Spontaneous
  Country: US (occurrence: US)
  Receive Date: 20080812
  Receipt Date: 20150120
  Transmission Date: 20150721
  Serious: Yes (Hospitalization, Disabling, Other)
  Sender: FDA-Public Use
  Company Number: US-ROCHE-541238

PATIENT
  Age: 20 Year
  Sex: Female
  Weight: 67 kg

DRUGS (1)
  1. ACCUTANE [Suspect]
     Active Substance: ISOTRETINOIN
     Indication: ACNE
     Dosage: ALTERNATING DOSE 40MG/80MG
     Route: 065
     Dates: start: 19990914, end: 20000508

REACTIONS (28)
  - Small intestinal obstruction [Recovering/Resolving]
  - Iron deficiency anaemia [Not Recovered/Not Resolved]
  - Eating disorder [Unknown]
  - Diarrhoea [Unknown]
  - Suicidal ideation [Unknown]
  - Colitis [Unknown]
  - Intervertebral disc degeneration [Unknown]
  - Small intestinal stenosis [Unknown]
  - Acne [Recovering/Resolving]
  - Drug dependence [Unknown]
  - Inflammatory bowel disease [Recovering/Resolving]
  - Facet joint syndrome [Unknown]
  - Intervertebral disc protrusion [Unknown]
  - Bursitis [Unknown]
  - Emotional distress [Unknown]
  - Insomnia [Unknown]
  - Chest pain [Unknown]
  - Depression [Unknown]
  - Irritable bowel syndrome [Unknown]
  - Cellulitis [Recovering/Resolving]
  - Fibromyalgia [Unknown]
  - Anxiety [Unknown]
  - Haemorrhoids [Unknown]
  - Abdominal pain [Unknown]
  - Crohn^s disease [Not Recovered/Not Resolved]
  - Spinal column stenosis [Unknown]
  - Blood triglycerides increased [Unknown]
  - Back pain [Unknown]

NARRATIVE: CASE EVENT DATE: 19991005
